FAERS Safety Report 12742889 (Version 1)
Quarter: 2016Q3

REPORT INFORMATION
  Report Type: Spontaneous
  Country: US (occurrence: US)
  Receive Date: 20160914
  Receipt Date: 20160914
  Transmission Date: 20161109
  Serious: Yes (Hospitalization)
  Sender: FDA-Public Use
  Company Number: None

PATIENT
  Age: 68 Year
  Sex: Male
  Weight: 96 kg

DRUGS (15)
  1. METOPROLOL SUCCINATE. [Concomitant]
     Active Substance: METOPROLOL SUCCINATE
  2. MULTIVITAMIN [Concomitant]
     Active Substance: VITAMINS
  3. VELCADE [Suspect]
     Active Substance: BORTEZOMIB
     Dates: end: 20160901
  4. ASPIRIN. [Concomitant]
     Active Substance: ASPIRIN
  5. FOSINOPRIL [Concomitant]
     Active Substance: FOSINOPRIL
  6. SIMVASTATIN. [Concomitant]
     Active Substance: SIMVASTATIN
  7. LENALIDOMIDE (CC-5013) [Suspect]
     Active Substance: LENALIDOMIDE
     Dates: end: 20160904
  8. DEXAMETHASONE. [Suspect]
     Active Substance: DEXAMETHASONE
     Dates: end: 20160902
  9. LOPERAMIDE [Concomitant]
     Active Substance: LOPERAMIDE
  10. DOZOLAMIDE-TIMOLOL OPTHALMIC [Concomitant]
  11. LATANOPROST OPHTHALMIC [Concomitant]
  12. LEVOTHYROXINE. [Concomitant]
     Active Substance: LEVOTHYROXINE
  13. HYDROCHLOROTHIAZIDE. [Concomitant]
     Active Substance: HYDROCHLOROTHIAZIDE
  14. IBUPROFEN. [Concomitant]
     Active Substance: IBUPROFEN
  15. POTASSIUM CHLORIDE. [Concomitant]
     Active Substance: POTASSIUM CHLORIDE

REACTIONS (5)
  - Hypokalaemia [None]
  - Dehydration [None]
  - Orthostatic intolerance [None]
  - Blood pressure decreased [None]
  - Thrombocytopenia [None]

NARRATIVE: CASE EVENT DATE: 20160905
